FAERS Safety Report 14971159 (Version 1)
Quarter: 2018Q2

REPORT INFORMATION
  Report Type: Spontaneous
  Country: CN (occurrence: CN)
  Receive Date: 20180604
  Receipt Date: 20180604
  Transmission Date: 20180711
  Serious: Yes (Other)
  Sender: FDA-Public Use
  Company Number: PHHY2018CN012795

PATIENT
  Age: 16 Year
  Sex: Female

DRUGS (4)
  1. DECITABINE. [Suspect]
     Active Substance: DECITABINE
     Indication: ACUTE MYELOID LEUKAEMIA RECURRENT
     Dosage: 20 MG/M2, UNK (1/D, 5 D)
     Route: 065
  2. ARA-C [Suspect]
     Active Substance: CYTARABINE
     Indication: ACUTE MYELOID LEUKAEMIA RECURRENT
     Dosage: 10 MG/M2, QD (2 D, D 1-14)
     Route: 065
  3. ACLARUBICIN [Suspect]
     Active Substance: ACLARUBICIN
     Indication: ACUTE MYELOID LEUKAEMIA RECURRENT
     Dosage: 14 MG/M2 (10-14 MG/M2), QD
     Route: 065
  4. FILGRASTIM [Suspect]
     Active Substance: FILGRASTIM
     Indication: ACUTE MYELOID LEUKAEMIA RECURRENT
     Dosage: 200 MG/M2, QD (D 0-14)
     Route: 065

REACTIONS (4)
  - Bone marrow failure [Unknown]
  - Liver disorder [Unknown]
  - Vomiting [Unknown]
  - Nausea [Unknown]
